FAERS Safety Report 4489820-5 (Version None)
Quarter: 2004Q4

REPORT INFORMATION
  Report Type: 
  Country: None (occurrence: None)
  Receive Date: 20041101
  Receipt Date: 20041019
  Transmission Date: 20050328
  Serious: Yes (Death, Hospitalization)
  Sender: FDA-Public Use
  Company Number: US-MERCK-0410USA02982

PATIENT
  Age: 49 Year
  Sex: Male

DRUGS (8)
  1. VIOXX [Suspect]
     Indication: EMPHYSEMA
     Route: 048
     Dates: start: 20040101
  2. LANOXIN [Concomitant]
     Route: 065
  3. WELLBUTRIN [Concomitant]
     Route: 065
  4. COREG [Concomitant]
     Route: 065
  5. ADVAIR [Concomitant]
     Route: 065
  6. COMBIVENT [Concomitant]
     Route: 065
  7. FUROSEMIDE [Concomitant]
     Route: 065
  8. TARKA [Concomitant]
     Route: 065

REACTIONS (4)
  - ADVERSE EVENT [None]
  - DEATH [None]
  - SLEEP DISORDER [None]
  - TOBACCO ABUSE [None]
